FAERS Safety Report 8965588 (Version 3)
Quarter: 2013Q1

REPORT INFORMATION
  Report Type: Spontaneous
  Country: GB (occurrence: None)
  Receive Date: 20121205
  Receipt Date: 20121217
  Transmission Date: 20140127
  Serious: Yes (Other)
  Sender: FDA-Public Use
  Company Number: AUR-APL-2012-05051

PATIENT
  Age: 50 Year
  Sex: Female

DRUGS (3)
  1. RIBAVIRIN [Suspect]
     Indication: HEPATITIS C
     Dosage: 1200 MG (600 MG, 2 IN 1 D), ORAL
     Dates: start: 20120924
  2. INCIVO [Suspect]
     Indication: HEPATITIS C
     Dates: start: 20120924
  3. PEGINTERFERON ALFA 2B [Suspect]
     Indication: HEPATITIS C
     Route: 058
     Dates: start: 20120924

REACTIONS (5)
  - Cough [None]
  - Dyspnoea [None]
  - Nausea [None]
  - Rash [None]
  - Decreased appetite [None]
